FAERS Safety Report 5856227-5 (Version None)
Quarter: 2008Q3

REPORT INFORMATION
  Report Type: 
  Country: None (occurrence: None)
  Receive Date: 20080825
  Receipt Date: 20080820
  Transmission Date: 20090109
  Serious: Yes (Hospitalization)
  Sender: FDA-Public Use
  Company Number: A0744074A

PATIENT
  Age: 46 Year
  Sex: Male
  Weight: 102.7 kg

DRUGS (1)
  1. AVANDIA [Suspect]
     Route: 065

REACTIONS (3)
  - FATIGUE [None]
  - HYPERTENSION [None]
  - MYOCARDIAL INFARCTION [None]
